FAERS Safety Report 15747295 (Version 1)
Quarter: 2018Q4

REPORT INFORMATION
  Report Type: Spontaneous
  Country: JP (occurrence: JP)
  Receive Date: 20181220
  Receipt Date: 20181220
  Transmission Date: 20190205
  Serious: Yes (Hospitalization, Other)
  Sender: FDA-Public Use
  Company Number: JP-DSJP-DSJ-2018-152837

PATIENT

DRUGS (6)
  1. OLMETEC OD [Suspect]
     Active Substance: OLMESARTAN MEDOXOMIL
     Indication: HYPERTENSION
     Dosage: 40MG/DAY
     Route: 048
  2. CYANAMIDE [Suspect]
     Active Substance: CYANAMIDE
     Indication: ABSTAINS FROM ALCOHOL
     Dosage: 70MG/DAY
     Route: 048
  3. MIGLITOL. [Concomitant]
     Active Substance: MIGLITOL
     Dosage: 50MG/DAY
     Route: 048
  4. EPALRESTAT [Concomitant]
     Active Substance: EPALRESTAT
     Dosage: 50MG/DAY
     Route: 048
  5. METFORMIN HYDROCHLORIDE. [Concomitant]
     Active Substance: METFORMIN HYDROCHLORIDE
     Dosage: 750MG/DAY
     Route: 048
  6. TENELIGLIPTIN HYDROBROMIDE [Concomitant]
     Active Substance: TENELIGLIPTIN HYDROBROMIDE ANHYDROUS
     Dosage: 20MG/DAY
     Route: 048

REACTIONS (2)
  - Aplastic anaemia [Recovered/Resolved]
  - Bacteraemia [Unknown]
